FAERS Safety Report 7925692-1 (Version None)
Quarter: 2011Q4

REPORT INFORMATION
  Report Type: 
  Country: None (occurrence: None)
  Receive Date: 20111118
  Receipt Date: 20110411
  Transmission Date: 20120403
  Serious: No
  Sender: FDA-Public Use
  Company Number: US-AMGEN-USASP2011019287

PATIENT
  Age: 63 Year
  Sex: Female
  Weight: 152 kg

DRUGS (12)
  1. LEVOTHYROXINE SODIUM [Concomitant]
  2. METOPROLOLTARTRAAT CF [Concomitant]
     Dosage: 25 MG, UNK
  3. FLOVENT [Concomitant]
  4. PLAQUENIL [Concomitant]
     Dosage: 200 MG, UNK
  5. TYLENOL W/ CODEINE NO. 3 [Concomitant]
  6. SIMVASTATIN [Concomitant]
     Dosage: 40 UNK, UNK
  7. HYDROXYZINE [Concomitant]
     Dosage: 25 MG, UNK
  8. ACCOLATE [Concomitant]
     Dosage: 20 MG, UNK
  9. POTASSIUM [Concomitant]
     Dosage: 99 MG, UNK
  10. MECLIZINE [Concomitant]
     Dosage: 25 MG, UNK
  11. TRIMIPRAMINE MALEATE [Concomitant]
     Dosage: 25 MG, UNK
  12. ENBREL [Suspect]
     Indication: PRODUCT USED FOR UNKNOWN INDICATION
     Dosage: 50 MG, QWK
     Route: 058

REACTIONS (2)
  - ERYTHEMA [None]
  - LOCAL SWELLING [None]
